FAERS Safety Report 11448850 (Version 1)
Quarter: 2015Q3

REPORT INFORMATION
  Report Type: Spontaneous
  Country: US (occurrence: US)
  Receive Date: 20150902
  Receipt Date: 20150902
  Transmission Date: 20151125
  Serious: No
  Sender: FDA-Public Use
  Company Number: US-BAYER-2015-407557

PATIENT
  Age: 81 Year
  Sex: Female
  Weight: 46.71 kg

DRUGS (1)
  1. OXYTROL FOR WOMEN [Suspect]
     Active Substance: OXYBUTYNIN
     Indication: HYPERTONIC BLADDER
     Dosage: 1 DF, FOUR DAYS
     Route: 061
     Dates: start: 201506

REACTIONS (3)
  - Application site rash [Not Recovered/Not Resolved]
  - Rash macular [Recovered/Resolved]
  - Product use issue [Unknown]

NARRATIVE: CASE EVENT DATE: 201508
